FAERS Safety Report 18611617 (Version 1)
Quarter: 2020Q4

REPORT INFORMATION
  Report Type: Spontaneous
  Country: FR (occurrence: FR)
  Receive Date: 20201214
  Receipt Date: 20201214
  Transmission Date: 20210114
  Serious: Yes (Other)
  Sender: FDA-Public Use
  Company Number: FR-MYLANLABS-2020M1100965

PATIENT
  Sex: Male

DRUGS (3)
  1. AZATHIOPRINE. [Concomitant]
     Active Substance: AZATHIOPRINE
     Indication: CHRONIC GRANULOMATOUS DISEASE
     Dosage: UNK
     Route: 065
  2. REMICADE [Suspect]
     Active Substance: INFLIXIMAB
     Indication: CHRONIC GRANULOMATOUS DISEASE
     Dosage: DOSE OF 5 OR 10 MG/KG/INFUSION, USUALLY AT 0,2,AND 6 WEEKS, THEN EVERY 4 TO 8 WEEKS
     Route: 042
  3. ADALIMUMAB [Suspect]
     Active Substance: ADALIMUMAB
     Indication: CHRONIC GRANULOMATOUS DISEASE
     Dosage: UNK
     Route: 058

REACTIONS (2)
  - Therapeutic product effect incomplete [Unknown]
  - Pulmonary mucormycosis [Unknown]
